FAERS Safety Report 25755026 (Version 1)
Quarter: 2025Q3

REPORT INFORMATION
  Report Type: Report from Study
  Country: CA (occurrence: CA)
  Receive Date: 20250903
  Receipt Date: 20250903
  Transmission Date: 20251020
  Serious: Yes (Death)
  Sender: AMGEN
  Company Number: CA-AMGEN-CANSL2025173207

PATIENT
  Age: 64 Year

DRUGS (1)
  1. AVSOLA [Suspect]
     Active Substance: INFLIXIMAB-AXXQ
     Indication: Crohn^s disease
     Dosage: 650 MILLIGRAM, Q4WK
     Route: 065

REACTIONS (2)
  - Cerebrovascular accident [Fatal]
  - Off label use [Unknown]

NARRATIVE: CASE EVENT DATE: 20250501
